FAERS Safety Report 9412444 (Version 3)
Quarter: 2013Q3

REPORT INFORMATION
  Report Type: Spontaneous
  Country: ES (occurrence: ES)
  Receive Date: 20130722
  Receipt Date: 20130813
  Transmission Date: 20140515
  Serious: Yes (Hospitalization)
  Sender: FDA-Public Use
  Company Number: ES-009507513-1307ESP007624

PATIENT
  Age: 44 Year
  Sex: Female
  Weight: 120 kg

DRUGS (3)
  1. VICTRELIS [Suspect]
     Indication: HEPATITIS C
     Dosage: STRENGTH: 200 MG, 4 TABLETS, Q8H
     Route: 048
     Dates: start: 20130608, end: 20130616
  2. PEGASYS [Suspect]
     Indication: HEPATITIS C
     Dosage: STRENGTH: 180 MICROGRAMS, UNK
     Route: 065
     Dates: start: 20130510, end: 20130702
  3. COPEGUS [Suspect]
     Indication: HEPATITIS C
     Dosage: 200 MG, Q12H
     Route: 065
     Dates: start: 20130510, end: 20130702

REACTIONS (4)
  - Cardiac failure congestive [Recovered/Resolved]
  - Pyrexia [Recovered/Resolved]
  - Urinary tract infection [Recovered/Resolved]
  - Abdominal pain upper [Recovered/Resolved]
